FAERS Safety Report 9470254 (Version 2)
Quarter: 2013Q3

REPORT INFORMATION
  Report Type: Spontaneous
  Country: US (occurrence: US)
  Receive Date: 20130822
  Receipt Date: 20130822
  Transmission Date: 20140515
  Serious: Yes (Hospitalization)
  Sender: FDA-Public Use
  Company Number: US-SANOFI-AVENTIS-2013SA048219

PATIENT
  Age: 83 Year
  Sex: Male
  Weight: 69 kg

DRUGS (3)
  1. MULTAQ [Suspect]
     Indication: ATRIAL FIBRILLATION
     Dosage: TAKEN FROM- 19 MONTHS AGO
     Route: 065
     Dates: start: 20100305, end: 20130530
  2. DIGOXIN [Concomitant]
  3. BISOPROLOL [Concomitant]

REACTIONS (5)
  - Asthenia [Not Recovered/Not Resolved]
  - Fatigue [Not Recovered/Not Resolved]
  - Decreased appetite [Not Recovered/Not Resolved]
  - Mental impairment [Not Recovered/Not Resolved]
  - Wrong technique in drug usage process [Unknown]
